FAERS Safety Report 16669650 (Version 1)
Quarter: 2019Q3

REPORT INFORMATION
  Report Type: Spontaneous
  Country: US (occurrence: US)
  Receive Date: 20190805
  Receipt Date: 20190805
  Transmission Date: 20191004
  Serious: No
  Sender: FDA-Public Use
  Company Number: US-TEVA-2019-US-1085414

PATIENT

DRUGS (4)
  1. LORAZEPAM ACTAVIS [Suspect]
     Active Substance: LORAZEPAM
  2. LORAZEPAM ACTAVIS [Suspect]
     Active Substance: LORAZEPAM
     Dosage: INCREASED 2 TABLETS AT NIGHT
  3. LORAZEPAM ACTAVIS [Suspect]
     Active Substance: LORAZEPAM
     Indication: ANXIETY
  4. LORAZEPAM ACTAVIS [Suspect]
     Active Substance: LORAZEPAM
     Dosage: 1-3 TABLETS PER DAY, AS NEEDED

REACTIONS (4)
  - Insomnia [Unknown]
  - Nausea [Unknown]
  - Product label issue [Unknown]
  - Headache [Unknown]
